FAERS Safety Report 9271131 (Version 2)
Quarter: 2013Q3

REPORT INFORMATION
  Report Type: Report from Study
  Country: NZ (occurrence: NZ)
  Receive Date: 20130506
  Receipt Date: 20130717
  Transmission Date: 20140515
  Serious: Yes (Other)
  Sender: FDA-Public Use
  Company Number: PHHY2013NZ042874

PATIENT
  Sex: Female
  Weight: 72 kg

DRUGS (1)
  1. CLOZARIL [Suspect]
     Dosage: 300 MG, UNK
     Dates: start: 20130214, end: 20130429

REACTIONS (4)
  - Asthma [Recovering/Resolving]
  - Chest pain [Recovering/Resolving]
  - Asthenia [Unknown]
  - Urinary incontinence [Recovered/Resolved]
